FAERS Safety Report 6104813-X (Version None)
Quarter: 2009Q1

REPORT INFORMATION
  Report Type: 
  Country: None (occurrence: None)
  Receive Date: 20090306
  Receipt Date: 20090224
  Transmission Date: 20090719
  Serious: Yes (Other)
  Sender: FDA-Public Use
  Company Number: US-JNJFOC-20090100170

PATIENT
  Sex: Female
  Weight: 122.93 kg

DRUGS (3)
  1. DOXIL [Suspect]
     Indication: ENDOMETRIAL CANCER
     Dosage: CYCLES 1-3
     Route: 042
  2. GEMCITABINE HCL [Concomitant]
  3. AVASTIN [Concomitant]

REACTIONS (1)
  - CARBOHYDRATE ANTIGEN 125 INCREASED [None]
